FAERS Safety Report 4648830-5 (Version None)
Quarter: 2005Q2

REPORT INFORMATION
  Report Type: 
  Country: None (occurrence: None)
  Receive Date: 20050429
  Receipt Date: 20050420
  Transmission Date: 20051028
  Serious: Yes (Other)
  Sender: FDA-Public Use
  Company Number: US-JNJFOC-20050406607

PATIENT
  Age: 5 Year

DRUGS (2)
  1. CHILDREN'S MOTRIN [Suspect]
     Route: 049
  2. CHILDREN'S MOTRIN [Suspect]
     Indication: DRUG USE FOR UNKNOWN INDICATION
     Route: 049

REACTIONS (3)
  - ANAPHYLACTIC REACTION [None]
  - DEAFNESS [None]
  - NERVE INJURY [None]
